FAERS Safety Report 8538585-6 (Version None)
Quarter: 2012Q3

REPORT INFORMATION
  Report Type: 
  Country: None (occurrence: None)
  Receive Date: 20120726
  Receipt Date: 20120717
  Transmission Date: 20120928
  Serious: Yes (Hospitalization)
  Sender: FDA-Public Use
  Company Number: US-BAYER-2011-124593

PATIENT
  Age: 48 Year
  Sex: Female

DRUGS (7)
  1. RED BLOOD CELLS [Concomitant]
     Indication: ANAEMIA
  2. LEVORA 0.15/30-21 [Concomitant]
  3. SEASONIQUE [Concomitant]
  4. FISH OIL [Concomitant]
     Dosage: UNK
  5. IRON SULFATETHIAMIN COMPOUND TAB [Concomitant]
     Dosage: 325 MG, BID
  6. MULTI-VITAMIN [Concomitant]
     Dosage: DAILY
     Dates: start: 20091008
  7. YASMIN [Suspect]
     Dosage: UNK
     Dates: start: 20090901, end: 20090901

REACTIONS (4)
  - INJURY [None]
  - DEEP VEIN THROMBOSIS [None]
  - PAIN [None]
  - EMOTIONAL DISTRESS [None]
